FAERS Safety Report 4274150-7 (Version None)
Quarter: 2004Q1

REPORT INFORMATION
  Report Type: 
  Country: None (occurrence: None)
  Receive Date: 20040115
  Receipt Date: 20040109
  Transmission Date: 20041129
  Serious: Yes (Death, Life-Threatening, Hospitalization)
  Sender: FDA-Public Use
  Company Number: 2003173232JP

PATIENT
  Age: 73 Year
  Sex: Male

DRUGS (9)
  1. CAMPTOSAR [Suspect]
     Indication: HEPATIC NEOPLASM MALIGNANT
     Dosage: SEE IMAGE
     Route: 013
     Dates: start: 20030724, end: 20030724
  2. CAMPTOSAR [Suspect]
     Indication: HEPATIC NEOPLASM MALIGNANT
     Dosage: SEE IMAGE
     Route: 013
     Dates: start: 20030724, end: 20030804
  3. FURTULON (DOXIFLURIDINE) [Concomitant]
  4. URSO [Concomitant]
  5. GLYCYRON (GLYCYRRHIZIC ACID, DL-METHIONINE, AMINOACETIC ACID) [Concomitant]
  6. HERBESSER [Concomitant]
  7. NEUQUINON (UBIDECARENONE) [Concomitant]
  8. ALDACTONE [Concomitant]
  9. LASIX [Concomitant]

REACTIONS (5)
  - ANAEMIA [None]
  - DISEASE PROGRESSION [None]
  - HEPATIC FAILURE [None]
  - HEPATIC NEOPLASM MALIGNANT [None]
  - INTERSTITIAL LUNG DISEASE [None]
